FAERS Safety Report 8460365-0 (Version None)
Quarter: 2012Q2

REPORT INFORMATION
  Report Type: 
  Country: None (occurrence: None)
  Receive Date: 20120622
  Receipt Date: 20120615
  Transmission Date: 20120825
  Serious: Yes (Other)
  Sender: FDA-Public Use
  Company Number: PR-ABBOTT-12P-131-0928502-00

PATIENT
  Sex: Female
  Weight: 74.91 kg

DRUGS (10)
  1. CATAFLAM [Concomitant]
     Indication: PRODUCT USED FOR UNKNOWN INDICATION
     Route: 048
     Dates: start: 20120320, end: 20120409
  2. SYNTHROID [Concomitant]
  3. SYNTHROID [Concomitant]
     Indication: THYROID DISORDER
     Dosage: 1 TABLET DAILY ON MONDAY TO FRIDAY
     Route: 048
     Dates: start: 20120120
  4. NEURONTIN [Concomitant]
     Indication: PRODUCT USED FOR UNKNOWN INDICATION
     Route: 048
     Dates: start: 20120320, end: 20120409
  5. HUMIRA [Suspect]
     Route: 058
  6. SYNTHROID [Concomitant]
     Dosage: 1 TABLET DAILY ON SATURDAYS + SUNDAYS
     Route: 048
     Dates: start: 20120402
  7. VITAMIN D [Concomitant]
     Indication: RHEUMATOID ARTHRITIS
     Dosage: 1 TABLET DAILY
     Route: 048
     Dates: start: 20100101
  8. CALCIUM [Concomitant]
     Indication: RHEUMATOID ARTHRITIS
     Dosage: 1 TABLET DAILY
     Route: 048
     Dates: start: 20100101
  9. HUMIRA [Suspect]
     Indication: RHEUMATOID ARTHRITIS
     Route: 058
     Dates: end: 20120324
  10. CYMBALTA [Concomitant]
     Indication: PRODUCT USED FOR UNKNOWN INDICATION
     Dosage: 1 TABLET AT BEDTIME
     Route: 048
     Dates: start: 20080101

REACTIONS (3)
  - VIRAL INFECTION [None]
  - BREAST RECONSTRUCTION [None]
  - RESPIRATORY TRACT CONGESTION [None]
